FAERS Safety Report 18940776 (Version 2)
Quarter: 2022Q1

REPORT INFORMATION
  Report Type: Spontaneous
  Country: RO (occurrence: RO)
  Receive Date: 20210225
  Receipt Date: 20220222
  Transmission Date: 20220424
  Serious: Yes (Hospitalization)
  Sender: FDA-Public Use
  Company Number: RO-TEVA-2021-RO-1880767

PATIENT
  Age: 73 Year
  Sex: Female

DRUGS (5)
  1. GABAPENTIN [Suspect]
     Active Substance: GABAPENTIN
     Dosage: 600 MILLIGRAM DAILY;
     Route: 065
  2. TIANEPTINE [Suspect]
     Active Substance: TIANEPTINE
     Dosage: 37.5 MILLIGRAM DAILY;
     Route: 065
  3. SULPIRIDE [Suspect]
     Active Substance: SULPIRIDE
     Dosage: 50 MILLIGRAM DAILY;
     Route: 065
  4. CLONAZEPAM [Suspect]
     Active Substance: CLONAZEPAM
     Dosage: 2 MILLIGRAM DAILY; WITH THE RECOMMENDATION TO BE GRADUALLY TAPERED AND DISCONTINUED IN OUTPATIENT UN
     Route: 065
  5. ZOPICLONE [Suspect]
     Active Substance: ZOPICLONE
     Dosage: 7.5 MILLIGRAM DAILY;
     Route: 065

REACTIONS (4)
  - Depressive symptom [Unknown]
  - Cognitive disorder [Unknown]
  - Treatment noncompliance [Unknown]
  - Drug abuse [Unknown]
